FAERS Safety Report 15943146 (Version 3)
Quarter: 2019Q4

REPORT INFORMATION
  Report Type: Spontaneous
  Country: US (occurrence: US)
  Receive Date: 20190210
  Receipt Date: 20191030
  Transmission Date: 20200122
  Serious: Yes (Other)
  Sender: FDA-Public Use
  Company Number: US-ASTRAZENECA-2019SE11626

PATIENT
  Age: 64 Year
  Sex: Female
  Weight: 62.1 kg

DRUGS (55)
  1. HYDROCODONE BITARTRATE AND ACETAMINOPHEN [Concomitant]
     Active Substance: ACETAMINOPHEN\HYDROCODONE BITARTRATE
  2. LISINOPRIL. [Concomitant]
     Active Substance: LISINOPRIL
  3. DEXILANT [Concomitant]
     Active Substance: DEXLANSOPRAZOLE
  4. ATORVASTATIN [Concomitant]
     Active Substance: ATORVASTATIN
  5. HUMALOG [Concomitant]
     Active Substance: INSULIN LISPRO
  6. GABAPENTIN. [Concomitant]
     Active Substance: GABAPENTIN
  7. RIZATRIPTAN. [Concomitant]
     Active Substance: RIZATRIPTAN
  8. DOXYCYCLINE. [Concomitant]
     Active Substance: DOXYCYCLINE
  9. RANITIDINE. [Concomitant]
     Active Substance: RANITIDINE
  10. TIZANIDINE. [Concomitant]
     Active Substance: TIZANIDINE
  11. LABETALOL [Concomitant]
     Active Substance: LABETALOL\LABETALOL HYDROCHLORIDE
  12. LABETALOL [Concomitant]
     Active Substance: LABETALOL\LABETALOL HYDROCHLORIDE
  13. RIZATRIPTAN. [Concomitant]
     Active Substance: RIZATRIPTAN
  14. MIDRIN [Concomitant]
     Active Substance: ACETAMINOPHEN\DICHLORALPHENAZONE\ISOMETHEPTENE
  15. CLONAZEPAM. [Concomitant]
     Active Substance: CLONAZEPAM
  16. CEPHALEXIN. [Concomitant]
     Active Substance: CEPHALEXIN
  17. TOPIRAMATE. [Concomitant]
     Active Substance: TOPIRAMATE
  18. PRILOSEC [Suspect]
     Active Substance: OMEPRAZOLE MAGNESIUM
     Indication: GASTROOESOPHAGEAL REFLUX DISEASE
     Route: 048
     Dates: start: 1990, end: 2003
  19. AMITRIPTYLINE [Concomitant]
     Active Substance: AMITRIPTYLINE
  20. DARVOCET [Concomitant]
     Active Substance: ACETAMINOPHEN\PROPOXYPHENE HYDROCHLORIDE
  21. NITROFURANTOIN. [Concomitant]
     Active Substance: NITROFURANTOIN
  22. BUPROPION. [Concomitant]
     Active Substance: BUPROPION
  23. NOVOLOG [Concomitant]
     Active Substance: INSULIN ASPART
  24. LEVOTHYROXINE. [Concomitant]
     Active Substance: LEVOTHYROXINE
  25. BUSPIRONE [Concomitant]
     Active Substance: BUSPIRONE HYDROCHLORIDE
  26. PRILOSEC [Suspect]
     Active Substance: OMEPRAZOLE MAGNESIUM
     Indication: GASTROOESOPHAGEAL REFLUX DISEASE
     Dosage: OMEPRAZOLE OTC
     Route: 065
     Dates: start: 2017
  27. ACIPHEX [Suspect]
     Active Substance: RABEPRAZOLE SODIUM
     Indication: GASTROOESOPHAGEAL REFLUX DISEASE
     Route: 065
     Dates: end: 2005
  28. TOPAMAX [Concomitant]
     Active Substance: TOPIRAMATE
  29. LEVOTHYROXINE. [Concomitant]
     Active Substance: LEVOTHYROXINE
  30. HYDROCODONE [Concomitant]
     Active Substance: HYDROCODONE
  31. LIPITOR [Concomitant]
     Active Substance: ATORVASTATIN CALCIUM
  32. AMLODIPINE [Concomitant]
     Active Substance: AMLODIPINE BESYLATE
  33. DOXYCYCLINE. [Concomitant]
     Active Substance: DOXYCYCLINE
  34. BENADRYL [Concomitant]
     Active Substance: DIPHENHYDRAMINE HYDROCHLORIDE
  35. AXID [Concomitant]
     Active Substance: NIZATIDINE
  36. MELATONIN [Concomitant]
     Active Substance: MELATONIN
  37. NEXIUM [Suspect]
     Active Substance: ESOMEPRAZOLE MAGNESIUM
     Indication: GASTROOESOPHAGEAL REFLUX DISEASE
     Route: 048
     Dates: start: 20010101, end: 20051231
  38. NEXIUM [Suspect]
     Active Substance: ESOMEPRAZOLE MAGNESIUM
     Indication: GASTROOESOPHAGEAL REFLUX DISEASE
     Route: 048
     Dates: start: 2001, end: 2012
  39. LEVAQUIN [Concomitant]
     Active Substance: LEVOFLOXACIN
  40. VITAMIN D3 [Concomitant]
     Active Substance: CHOLECALCIFEROL
  41. TAGAMET [Concomitant]
     Active Substance: CIMETIDINE
  42. DOXEPIN [Concomitant]
     Active Substance: DOXEPIN
  43. ZANTAC [Concomitant]
     Active Substance: RANITIDINE HYDROCHLORIDE
  44. TRAZODONE [Concomitant]
     Active Substance: TRAZODONE HYDROCHLORIDE
  45. LEVEMIR [Concomitant]
     Active Substance: INSULIN DETEMIR
  46. INSULIN [Concomitant]
     Active Substance: INSULIN NOS
  47. PROTONIX [Suspect]
     Active Substance: PANTOPRAZOLE SODIUM
     Indication: GASTROOESOPHAGEAL REFLUX DISEASE
     Route: 065
     Dates: start: 2001, end: 2004
  48. TRAZODONE [Concomitant]
     Active Substance: TRAZODONE HYDROCHLORIDE
  49. DOXEPIN [Concomitant]
     Active Substance: DOXEPIN
  50. ACETAMINOPHEN. [Concomitant]
     Active Substance: ACETAMINOPHEN
  51. MELATONIN [Concomitant]
     Active Substance: MELATONIN
  52. INDERAL [Concomitant]
     Active Substance: PROPRANOLOL HYDROCHLORIDE
  53. CIPROFLOXACIN. [Concomitant]
     Active Substance: CIPROFLOXACIN
  54. AMOXICILLINE [Concomitant]
     Active Substance: AMOXICILLIN
  55. CEFDINIR. [Concomitant]
     Active Substance: CEFDINIR

REACTIONS (2)
  - Acute kidney injury [Not Recovered/Not Resolved]
  - Chronic kidney disease [Not Recovered/Not Resolved]

NARRATIVE: CASE EVENT DATE: 2018
